FAERS Safety Report 18819656 (Version 1)
Quarter: 2021Q1

REPORT INFORMATION
  Report Type: Spontaneous
  Country: CH (occurrence: CH)
  Receive Date: 20210202
  Receipt Date: 20210202
  Transmission Date: 20210419
  Serious: Yes (Disabling, Other)
  Sender: FDA-Public Use
  Company Number: CH-TEVA-2021-CH-1876280

PATIENT
  Age: 8 Year
  Sex: Female
  Weight: 29 kg

DRUGS (2)
  1. MEPHAMESON [Suspect]
     Active Substance: DEXAMETHASONE
     Dosage: 48 MILLIGRAM DAILY;
     Route: 041
     Dates: start: 20210109, end: 20210111
  2. PREDNISONE. [Concomitant]
     Active Substance: PREDNISONE
     Dosage: 60 MILLIGRAM DAILY;
     Route: 048
     Dates: start: 20210108, end: 20210108

REACTIONS (6)
  - Accidental overdose [Recovered/Resolved]
  - Headache [Unknown]
  - Vomiting [Unknown]
  - Hepatocellular injury [Unknown]
  - Nausea [Unknown]
  - Asthenia [Unknown]

NARRATIVE: CASE EVENT DATE: 20210109
